FAERS Safety Report 9236430 (Version 2)
Quarter: 2013Q2

REPORT INFORMATION
  Report Type: Spontaneous
  Country: GB (occurrence: GB)
  Receive Date: 20130417
  Receipt Date: 20130424
  Transmission Date: 20140414
  Serious: Yes (Other)
  Sender: FDA-Public Use
  Company Number: PHHY2013GB035146

PATIENT
  Sex: 0

DRUGS (1)
  1. AMLODIPINE [Suspect]

REACTIONS (5)
  - Suicidal ideation [Unknown]
  - Rash [Unknown]
  - Local swelling [Unknown]
  - Joint swelling [Unknown]
  - Malaise [Unknown]
